FAERS Safety Report 21178090 (Version 1)
Quarter: 2022Q3

REPORT INFORMATION
  Report Type: Spontaneous
  Country: CA (occurrence: CA)
  Receive Date: 20220805
  Receipt Date: 20220805
  Transmission Date: 20221026
  Serious: Yes (Hospitalization)
  Sender: FDA-Public Use
  Company Number: CA-PFIZER INC-202201029894

PATIENT
  Age: 60 Year
  Sex: Female
  Weight: 72 kg

DRUGS (29)
  1. CYTARABINE [Suspect]
     Active Substance: CYTARABINE
     Indication: Acute lymphocytic leukaemia
     Dosage: 40 MG, CYCLIC
  2. METHOTREXATE SODIUM [Suspect]
     Active Substance: METHOTREXATE SODIUM
     Indication: Acute lymphocytic leukaemia
     Dosage: 15 MG, CYCLIC
  3. HYDROCORTISONE [Suspect]
     Active Substance: HYDROCORTISONE
     Indication: Acute lymphocytic leukaemia
     Dosage: 100 MG
  4. CYCLOPHOSPHAMIDE [Suspect]
     Active Substance: CYCLOPHOSPHAMIDE
     Indication: Acute lymphocytic leukaemia
     Dosage: 1320 MG, CYCLIC
  5. DAUNORUBICIN HYDROCHLORIDE [Suspect]
     Active Substance: DAUNORUBICIN HYDROCHLORIDE
     Indication: Acute lymphocytic leukaemia
     Dosage: 53 MG, CYCLIC
  6. PEG/L-ASPARAGINASE [Suspect]
     Active Substance: PEGASPARGASE
     Indication: Acute lymphocytic leukaemia
     Dosage: 1760 IU, CYCLIC
  7. PREDNISONE [Suspect]
     Active Substance: PREDNISONE
     Indication: Acute lymphocytic leukaemia
     Dosage: 100 MG, CYCLIC
  8. ACETAMINOPHEN [Concomitant]
     Active Substance: ACETAMINOPHEN
  9. ALLOPURINOL [Concomitant]
     Active Substance: ALLOPURINOL
  10. AMLODIPINE [Concomitant]
     Active Substance: AMLODIPINE BESYLATE
     Route: 065
  11. CASPOFUNGIN [Concomitant]
     Active Substance: CASPOFUNGIN
  12. DICLOFENAC [Concomitant]
     Active Substance: DICLOFENAC
  13. DIMENHYDRINATE [Concomitant]
     Active Substance: DIMENHYDRINATE
  14. DIPHENHYDRAMINE [Concomitant]
     Active Substance: DIPHENHYDRAMINE
  15. ENOXAPARIN [Concomitant]
     Active Substance: ENOXAPARIN
  16. FILGRASTIM [Concomitant]
     Active Substance: FILGRASTIM
  17. HYDROMORPHONE [Concomitant]
     Active Substance: HYDROMORPHONE
  18. LORAZEPAM [Concomitant]
     Active Substance: LORAZEPAM
     Route: 065
  19. METOCLOPRAMIDE [Concomitant]
     Active Substance: METOCLOPRAMIDE
  20. OLANZAPINE [Concomitant]
     Active Substance: OLANZAPINE
  21. ONDANSETRON [Concomitant]
     Active Substance: ONDANSETRON
  22. PANTOPRAZOLE [Concomitant]
     Active Substance: PANTOPRAZOLE
  23. POLYETHYLENE GLYCOLS [Concomitant]
     Active Substance: POLYETHYLENE GLYCOLS
  24. POTASSIUM [Concomitant]
     Active Substance: POTASSIUM
  25. PROCHLORPERAZINE [Concomitant]
     Active Substance: PROCHLORPERAZINE
  26. SULFAMETHOXAZOLE\TRIMETHOPRIM [Concomitant]
     Active Substance: SULFAMETHOXAZOLE\TRIMETHOPRIM
  27. VALACYCLOVIR [Concomitant]
     Active Substance: VALACYCLOVIR HYDROCHLORIDE
  28. VINCRISTINE SULFATE [Concomitant]
     Active Substance: VINCRISTINE SULFATE
  29. VITAMIN K [Concomitant]
     Active Substance: PHYTONADIONE

REACTIONS (3)
  - Alpha haemolytic streptococcal infection [Recovered/Resolved]
  - Escherichia bacteraemia [Recovered/Resolved]
  - Febrile neutropenia [Recovered/Resolved]
